FAERS Safety Report 6975316-5 (Version None)
Quarter: 2010Q3

REPORT INFORMATION
  Report Type: 
  Country: None (occurrence: None)
  Receive Date: 20100910
  Receipt Date: 20090401
  Transmission Date: 20110219
  Serious: Yes (Hospitalization)
  Sender: FDA-Public Use
  Company Number: US-WYE-H08470209

PATIENT
  Sex: Female

DRUGS (4)
  1. PRISTIQ [Suspect]
     Dates: end: 20090201
  2. MULTI-VITAMINS [Concomitant]
     Dosage: UNKNOWN DAILY DOSE
  3. XANAX [Concomitant]
     Dosage: 0.25 MG THREE TIMES A DAY AS NEEDED
     Route: 048
  4. CRESTOR [Concomitant]

REACTIONS (1)
  - CONVULSION [None]
